FAERS Safety Report 5383763-0 (Version None)
Quarter: 2007Q3

REPORT INFORMATION
  Report Type: 
  Country: None (occurrence: None)
  Receive Date: 20070706
  Receipt Date: 20070622
  Transmission Date: 20080115
  Serious: Yes (Hospitalization, Other)
  Sender: FDA-Public Use
  Company Number: 235145K07USA

PATIENT
  Age: 29 Year
  Sex: Male
  Weight: 83.9154 kg

DRUGS (1)
  1. REBIF [Suspect]
     Indication: MULTIPLE SCLEROSIS
     Dosage: 44 MCG, 3 IN 1 WEEKS, SUBCUTANEOUS
     Route: 058
     Dates: start: 20050316

REACTIONS (2)
  - MULTIPLE SCLEROSIS RELAPSE [None]
  - SKIN CANCER [None]
